FAERS Safety Report 6649994-4 (Version None)
Quarter: 2010Q1

REPORT INFORMATION
  Report Type: 
  Country: None (occurrence: None)
  Receive Date: 20100324
  Receipt Date: 20100324
  Transmission Date: 20100710
  Serious: Yes (Other)
  Sender: FDA-Public Use
  Company Number: None

PATIENT
  Age: 73 Year
  Sex: Male
  Weight: 71.2147 kg

DRUGS (2)
  1. COUMADIN [Suspect]
     Indication: HEART RATE IRREGULAR
     Dosage: 5 MG
     Dates: start: 20100113, end: 20100309
  2. PACERONE [Suspect]
     Dosage: 200 MG 1 PER DAY
     Dates: start: 20100113, end: 20100309

REACTIONS (4)
  - ASTHENIA [None]
  - REFUSAL OF TREATMENT BY PATIENT [None]
  - SLEEP DISORDER [None]
  - UNEVALUABLE EVENT [None]
